FAERS Safety Report 8097859-6 (Version None)
Quarter: 2012Q1

REPORT INFORMATION
  Report Type: 
  Country: None (occurrence: None)
  Receive Date: 20120128
  Receipt Date: 20110815
  Transmission Date: 20120608
  Serious: No
  Sender: FDA-Public Use
  Company Number: US-ABBOTT-11P-163-0846629-00

PATIENT
  Sex: Female

DRUGS (13)
  1. HUMIRA [Suspect]
     Indication: PSORIASIS
     Dates: start: 20110425
  2. CARTIA XT [Concomitant]
     Indication: ATRIAL FIBRILLATION
  3. LATANOPROST [Concomitant]
     Indication: MACULAR DEGENERATION
     Dosage: LEFT EYE 1 GTT, RIGHT EYE 1 GTT
  4. ISTOLOL [Concomitant]
     Indication: PRODUCT USED FOR UNKNOWN INDICATION
     Dosage: 1 GTT, IN EACH EYE
  5. WARFARIN SODIUM [Concomitant]
     Indication: MACULAR DEGENERATION
     Dosage: EXCEPT SUNDAY
  6. SYNTHROID [Concomitant]
     Indication: PRODUCT USED FOR UNKNOWN INDICATION
  7. NEXIUM [Concomitant]
     Indication: ABDOMINAL DISCOMFORT
  8. ACETAMINOPHEN [Concomitant]
     Indication: RHEUMATOID ARTHRITIS
  9. METOPROLOL TARTRATE [Concomitant]
     Indication: ATRIAL FIBRILLATION
  10. LATANOPROST [Concomitant]
     Indication: GLAUCOMA
  11. POTASSIUM GLUCONATE TAB [Concomitant]
     Indication: MINERAL SUPPLEMENTATION
  12. BETAKARATINE [Concomitant]
     Indication: ONYCHOCLASIS
     Dosage: GEL TABLETS
  13. CALTRATE PLUS-D [Concomitant]
     Indication: MINERAL SUPPLEMENTATION

REACTIONS (4)
  - EYE INFECTION [None]
  - INJECTION SITE REACTION [None]
  - NAUSEA [None]
  - INJECTION SITE PRURITUS [None]
